FAERS Safety Report 14186506 (Version 1)
Quarter: 2017Q4

REPORT INFORMATION
  Report Type: Spontaneous
  Country: US (occurrence: US)
  Receive Date: 20171112
  Receipt Date: 20171112
  Transmission Date: 20180321
  Serious: Yes (Other)
  Sender: FDA-Public Use
  Company Number: None

PATIENT
  Sex: Female
  Weight: 66.6 kg

DRUGS (3)
  1. LISINOPRIL. [Concomitant]
     Active Substance: LISINOPRIL
  2. MULTI VITAMIN [Concomitant]
     Active Substance: VITAMINS
  3. SULFAMETH/TMP [Suspect]
     Active Substance: SULFAMETHOXAZOLE\TRIMETHOPRIM
     Indication: BLOOD URINE PRESENT
     Dosage: ?          QUANTITY:1 TABLET(S);?
     Route: 048
     Dates: start: 20171108, end: 20171110

REACTIONS (4)
  - Tongue disorder [None]
  - Ocular hyperaemia [None]
  - Lip swelling [None]
  - Tongue ulceration [None]

NARRATIVE: CASE EVENT DATE: 20171109
